FAERS Safety Report 8727842 (Version 2)
Quarter: 2013Q2

REPORT INFORMATION
  Report Type: Spontaneous
  Country: US (occurrence: US)
  Receive Date: 20120816
  Receipt Date: 20130425
  Transmission Date: 20140414
  Serious: No
  Sender: FDA-Public Use
  Company Number: US-AMGEN-USASP2012043782

PATIENT
  Age: 78 Year
  Sex: Female
  Weight: 50.79 kg

DRUGS (8)
  1. NPLATE [Suspect]
     Indication: IDIOPATHIC THROMBOCYTOPENIC PURPURA
     Dosage: 300 MUG, QWK
     Dates: start: 20120615, end: 20121105
  2. NPLATE [Suspect]
  3. LOSARTAN [Concomitant]
     Dosage: UNK
  4. ATENOLOL [Concomitant]
     Dosage: UNK
  5. COLESTID [Concomitant]
     Dosage: UNK
  6. CALCIUM [Concomitant]
     Dosage: UNK
  7. VITAMINS [Concomitant]
     Dosage: UNK
  8. VITAMIN 15 [Concomitant]

REACTIONS (10)
  - White blood cell count increased [Not Recovered/Not Resolved]
  - Pain in jaw [Not Recovered/Not Resolved]
  - Influenza like illness [Unknown]
  - Pruritus [Not Recovered/Not Resolved]
  - Viral infection [Unknown]
  - Platelet count abnormal [Not Recovered/Not Resolved]
  - Sinusitis [Unknown]
  - Procedural pain [Unknown]
  - Drug ineffective [Unknown]
  - Pain in extremity [Not Recovered/Not Resolved]
